FAERS Safety Report 6840481-7 (Version None)
Quarter: 2010Q3

REPORT INFORMATION
  Report Type: 
  Country: None (occurrence: None)
  Receive Date: 20100714
  Receipt Date: 20100623
  Transmission Date: 20110219
  Serious: Yes (Hospitalization)
  Sender: FDA-Public Use
  Company Number: A0833471A

PATIENT
  Age: 64 Year
  Sex: Female
  Weight: 159.1 kg

DRUGS (2)
  1. AVANDIA [Suspect]
     Indication: DIABETES MELLITUS
     Dosage: 8MG PER DAY
     Route: 048
     Dates: start: 20030101, end: 20070901
  2. AVANDAMET [Suspect]
     Indication: DIABETES MELLITUS
     Dosage: 2TAB PER DAY
     Route: 048
     Dates: start: 20040801, end: 20040901

REACTIONS (6)
  - CARDIAC FAILURE CONGESTIVE [None]
  - FEAR [None]
  - INJURY [None]
  - INTRACARDIAC THROMBUS [None]
  - OEDEMA PERIPHERAL [None]
  - QUALITY OF LIFE DECREASED [None]
